FAERS Safety Report 10794983 (Version 1)
Quarter: 2015Q1

REPORT INFORMATION
  Report Type: Spontaneous
  Country: US (occurrence: US)
  Receive Date: 20150214
  Receipt Date: 20150214
  Transmission Date: 20150721
  Serious: No
  Sender: FDA-Public Use
  Company Number: US-GLAXOSMITHKLINE-A1067429A

PATIENT

DRUGS (1)
  1. ALLI [Suspect]
     Active Substance: ORLISTAT
     Indication: WEIGHT LOSS DIET
     Route: 048
     Dates: end: 20140331

REACTIONS (4)
  - Dizziness postural [Unknown]
  - Dizziness [Recovered/Resolved]
  - Decreased activity [Unknown]
  - Peripheral coldness [Unknown]
